FAERS Safety Report 7472456-1 (Version None)
Quarter: 2011Q2

REPORT INFORMATION
  Report Type: 
  Country: None (occurrence: None)
  Receive Date: 20110511
  Receipt Date: 20110502
  Transmission Date: 20111010
  Serious: Yes (Death, Hospitalization, Other)
  Sender: FDA-Public Use
  Company Number: US-NOVOPROD-327537

PATIENT
  Sex: Male
  Weight: 10.431 kg

DRUGS (1)
  1. NORDITROPIN NORDIFLEX [Suspect]
     Indication: GROWTH HORMONE DEFICIENCY
     Dosage: UNK
     Dates: start: 20090101, end: 20101001

REACTIONS (5)
  - HEPATOMEGALY [None]
  - VIRAL INFECTION [None]
  - DEATH [None]
  - RENAL IMPAIRMENT [None]
  - VOMITING [None]
